FAERS Safety Report 5514771-4 (Version None)
Quarter: 2007Q4

REPORT INFORMATION
  Report Type: 
  Country: None (occurrence: None)
  Receive Date: 20071113
  Receipt Date: 20071101
  Transmission Date: 20080405
  Serious: Yes (Life-Threatening, Hospitalization)
  Sender: FDA-Public Use
  Company Number: US-GENENTECH-250914

PATIENT

DRUGS (5)
  1. BEVACIZUMAB [Suspect]
     Indication: COLON CANCER
     Dosage: 5 MG/KG, Q2W
     Route: 042
     Dates: start: 20070928
  2. OXALIPLATIN [Suspect]
     Indication: COLON CANCER
     Dosage: 85 MG/M2, Q2W
     Route: 042
     Dates: start: 20070928
  3. FOLINIC ACID [Suspect]
     Indication: COLON CANCER
     Dosage: 400 MG/M2, Q2W
     Route: 042
     Dates: start: 20070928
  4. FLUOROURACIL [Suspect]
     Indication: COLON CANCER
     Dosage: 400 MG/M2, SINGLE
     Route: 042
     Dates: start: 20070928
  5. FLUOROURACIL [Suspect]
     Dosage: 2400 MG/M2, Q2W
     Route: 042

REACTIONS (1)
  - ATRIAL FIBRILLATION [None]
